FAERS Safety Report 9286513 (Version 1)
Quarter: 2013Q2

REPORT INFORMATION
  Report Type: Spontaneous
  Country: DE (occurrence: None)
  Receive Date: 20130508
  Receipt Date: 20130508
  Transmission Date: 20140414
  Serious: Yes (Other)
  Sender: FDA-Public Use
  Company Number: SP06509

PATIENT
  Age: 55 Year
  Sex: Female
  Weight: 60 kg

DRUGS (2)
  1. MOVIPREP (SOLUTION) [Suspect]
     Route: 048
     Dates: start: 20130304, end: 20130304
  2. SIMETHICONE [Suspect]
     Dates: start: 20130304, end: 20130304

REACTIONS (5)
  - Tremor [None]
  - Vertigo [None]
  - Headache [None]
  - Nausea [None]
  - Hot flush [None]
